FAERS Safety Report 25221215 (Version 1)
Quarter: 2025Q2

REPORT INFORMATION
  Report Type: Spontaneous
  Country: US (occurrence: US)
  Receive Date: 20250421
  Receipt Date: 20250421
  Transmission Date: 20250717
  Serious: Yes (Other)
  Sender: Kenvue
  Company Number: US-KENVUE-20250405748

PATIENT
  Sex: Male

DRUGS (1)
  1. LISTERINE ULTRACLEAN ANTISEPTIC COOL MINT [Suspect]
     Active Substance: EUCALYPTOL\MENTHOL\METHYL SALICYLATE\THYMOL
     Indication: Product used for unknown indication
     Dosage: UNK UNK, TWICE A DAY
     Route: 048
     Dates: start: 2021

REACTIONS (4)
  - Dental caries [Unknown]
  - Tooth loss [Unknown]
  - Tooth disorder [Unknown]
  - Dysbiosis [Unknown]
